FAERS Safety Report 21858184 (Version 1)
Quarter: 2023Q1

REPORT INFORMATION
  Report Type: Other
  Country: BR (occurrence: BR)
  Receive Date: 20230113
  Receipt Date: 20230113
  Transmission Date: 20230418
  Serious: Yes (Other)
  Sender: FDA-Public Use
  Company Number: BR-ROCHE-3263576

PATIENT
  Age: 56 Year
  Sex: Female

DRUGS (6)
  1. XOLAIR [Suspect]
     Active Substance: OMALIZUMAB
     Indication: Urticaria chronic
     Dosage: UNK
     Route: 065
     Dates: start: 2018
  2. XOLAIR [Suspect]
     Active Substance: OMALIZUMAB
     Dosage: UNK
     Route: 065
     Dates: start: 202205
  3. XOLAIR [Suspect]
     Active Substance: OMALIZUMAB
     Route: 065
     Dates: start: 2019
  4. RIZI [Concomitant]
     Indication: Antiallergic therapy
     Dosage: UNK
  5. RISPERIDONE [Concomitant]
     Active Substance: RISPERIDONE
     Indication: Product used for unknown indication
     Dosage: UNK
  6. CORTISONE [Concomitant]
     Active Substance: CORTISONE
     Indication: Product used for unknown indication
     Dosage: UNK

REACTIONS (14)
  - Anaphylactic shock [Unknown]
  - Hypertension [Unknown]
  - Chest pain [Unknown]
  - Oropharyngeal pain [Unknown]
  - Memory impairment [Unknown]
  - Laryngospasm [Recovering/Resolving]
  - Breast swelling [Recovering/Resolving]
  - Peripheral swelling [Recovering/Resolving]
  - Pruritus [Recovering/Resolving]
  - Nervousness [Unknown]
  - Weight decreased [Unknown]
  - Vitamin D increased [Unknown]
  - Urticaria [Unknown]
  - Cough [Unknown]
